FAERS Safety Report 4477620-1 (Version None)
Quarter: 2004Q4

REPORT INFORMATION
  Report Type: 
  Country: None (occurrence: None)
  Receive Date: 20041014
  Receipt Date: 20041005
  Transmission Date: 20050328
  Serious: Yes (Hospitalization)
  Sender: FDA-Public Use
  Company Number: 2004UW18650

PATIENT
  Age: 48 Year
  Sex: Male
  Weight: 192 kg

DRUGS (3)
  1. PRILOSEC OTC [Suspect]
     Indication: DYSPEPSIA
     Dosage: 20 MG DAILY PO
     Route: 048
     Dates: start: 20040722, end: 20040726
  2. PRILOSEC OTC [Suspect]
     Indication: FLATULENCE
     Dosage: 20 MG DAILY PO
     Route: 048
     Dates: start: 20040722, end: 20040726
  3. ZANTAC [Concomitant]

REACTIONS (10)
  - ABDOMINAL PAIN UPPER [None]
  - ACHLORHYDRIA [None]
  - BLOOD PRESSURE DECREASED [None]
  - CONSTIPATION [None]
  - DISEASE RECURRENCE [None]
  - INSOMNIA [None]
  - INTESTINAL OBSTRUCTION [None]
  - MUSCLE CRAMP [None]
  - POST PROCEDURAL VOMITING [None]
  - SYNCOPE [None]
